FAERS Safety Report 5515231-7 (Version None)
Quarter: 2007Q4

REPORT INFORMATION
  Report Type: 
  Country: None (occurrence: None)
  Receive Date: 20071109
  Receipt Date: 20071030
  Transmission Date: 20080405
  Serious: Yes (Hospitalization, Other)
  Sender: FDA-Public Use
  Company Number: 07-002133

PATIENT
  Age: 75 Year
  Sex: Female
  Weight: 64.4 kg

DRUGS (4)
  1. ESTRACE [Suspect]
     Indication: HYSTERECTOMY
     Dosage: 2 GRAMS TWICE A WEEK, VAGINAL, 2 GRAMS ONCE A WEEK, VAGINAL
     Route: 067
     Dates: start: 19970101, end: 20070801
  2. ESTRACE [Suspect]
     Indication: HYSTERECTOMY
     Dosage: 2 GRAMS TWICE A WEEK, VAGINAL, 2 GRAMS ONCE A WEEK, VAGINAL
     Route: 067
     Dates: start: 20070801
  3. PREVACID [Concomitant]
  4. ALPHAGAN P [Concomitant]

REACTIONS (7)
  - CARDIAC FAILURE [None]
  - DIVERTICULITIS [None]
  - DRUG ADMINISTRATION ERROR [None]
  - OVARIAN REPAIR [None]
  - PNEUMONIA [None]
  - RENAL PAIN [None]
  - URINARY TRACT INFECTION [None]
